FAERS Safety Report 5960265-1 (Version None)
Quarter: 2008Q4

REPORT INFORMATION
  Report Type: 
  Country: None (occurrence: None)
  Receive Date: 20081120
  Receipt Date: 20081111
  Transmission Date: 20090506
  Serious: Yes (Other)
  Sender: FDA-Public Use
  Company Number: US-WYE-H06788108

PATIENT
  Age: 24 Year
  Sex: Female
  Weight: 50.39 kg

DRUGS (2)
  1. PRISTIQ [Suspect]
     Route: 048
     Dates: start: 20081106
  2. ORTHO EVRA [Concomitant]
     Dosage: UNKNOWN

REACTIONS (4)
  - FATIGUE [None]
  - LOSS OF CONSCIOUSNESS [None]
  - SOCIAL AVOIDANT BEHAVIOUR [None]
  - SOMNOLENCE [None]
